FAERS Safety Report 6931283-1 (Version None)
Quarter: 2010Q3

REPORT INFORMATION
  Report Type: 
  Country: None (occurrence: None)
  Receive Date: 20100816
  Receipt Date: 20100803
  Transmission Date: 20110219
  Serious: Yes (Other)
  Sender: FDA-Public Use
  Company Number: B0669280A

PATIENT
  Sex: 0

DRUGS (1)
  1. PROPRANOLOL HYDROCHLORIDE [Suspect]
     Indication: HAEMANGIOMA
     Dosage: TWICE PER DAY

REACTIONS (3)
  - BRADYCARDIA [None]
  - HAEMORRHAGE [None]
  - ULCER [None]
